FAERS Safety Report 12465777 (Version 11)
Quarter: 2018Q2

REPORT INFORMATION
  Report Type: Spontaneous
  Country: FR (occurrence: FR)
  Receive Date: 20160614
  Receipt Date: 20180523
  Transmission Date: 20180711
  Serious: Yes (Hospitalization, Other)
  Sender: FDA-Public Use
  Company Number: FR-PFIZER INC-2016290972

PATIENT
  Age: 42 Year
  Sex: Female
  Weight: 56 kg

DRUGS (4)
  1. BROMAZEPAM [Suspect]
     Active Substance: BROMAZEPAM
     Dosage: 180 MG, SINGLE
     Route: 048
     Dates: start: 20150306, end: 20150306
  2. VENLAFAXINE HCL [Suspect]
     Active Substance: VENLAFAXINE HYDROCHLORIDE
     Dosage: 7875 MG, SINGLE
     Route: 048
     Dates: start: 20150306, end: 20150306
  3. ESCITALOPRAM [Suspect]
     Active Substance: ESCITALOPRAM OXALATE
     Dosage: 840 MG, SINGLE
     Route: 048
     Dates: start: 20150306, end: 20150306
  4. LORMETAZEPAM [Suspect]
     Active Substance: LORMETAZEPAM
     Dosage: 14 MG, SINGLE
     Route: 048
     Dates: start: 20150306, end: 20150306

REACTIONS (8)
  - Intentional overdose [Recovered/Resolved]
  - Confusional state [Unknown]
  - Psychomotor retardation [Unknown]
  - Clonus [Recovered/Resolved]
  - Electrocardiogram QT prolonged [Recovered/Resolved]
  - Suicide attempt [Unknown]
  - Toxicity to various agents [Recovered/Resolved]
  - Hypoglycaemia [Recovered/Resolved]

NARRATIVE: CASE EVENT DATE: 201503
